FAERS Safety Report 8614726-7 (Version None)
Quarter: 2012Q3

REPORT INFORMATION
  Report Type: 
  Country: None (occurrence: None)
  Receive Date: 20120809
  Receipt Date: 20120727
  Transmission Date: 20120928
  Serious: Yes (Hospitalization)
  Sender: FDA-Public Use
  Company Number: 2012AP002305

PATIENT
  Age: 49 Year
  Sex: Male

DRUGS (7)
  1. GABAPENTIN [Suspect]
     Indication: BACK PAIN
     Dosage: 600 MG;Q8H,
  2. GABAPENTIN [Suspect]
     Indication: OFF LABEL USE
     Dosage: 600 MG;Q8H,
  3. MIANSERIN [Concomitant]
  4. EPROSARTAN MESYLATE [Concomitant]
  5. PAROXETINE [Concomitant]
  6. DISULFIRAM [Concomitant]
  7. BISOPROLOL FUMARATE [Concomitant]

REACTIONS (17)
  - GENERAL PHYSICAL HEALTH DETERIORATION [None]
  - METABOLIC ACIDOSIS [None]
  - OFF LABEL USE [None]
  - ENCEPHALOPATHY [None]
  - HAEMODIALYSIS [None]
  - HYPOTENSION [None]
  - DELIRIUM [None]
  - DISORIENTATION [None]
  - TREMOR [None]
  - RHABDOMYOLYSIS [None]
  - HYPERKALAEMIA [None]
  - RENAL FAILURE ACUTE [None]
  - DRUG SCREEN POSITIVE [None]
  - OLIGURIA [None]
  - DIALYSIS [None]
  - SOMNOLENCE [None]
  - MYOCLONUS [None]
